FAERS Safety Report 4356882-5 (Version None)
Quarter: 2004Q2

REPORT INFORMATION
  Report Type: 
  Country: None (occurrence: None)
  Receive Date: 20040512
  Receipt Date: 20040506
  Transmission Date: 20050107
  Serious: Yes (Hospitalization)
  Sender: FDA-Public Use
  Company Number: US-BRISTOL-MYERS SQUIBB COMPANY-12580536

PATIENT
  Age: 32 Year
  Sex: Male
  Weight: 38 kg

DRUGS (2)
  1. TEQUIN [Suspect]
     Route: 048
     Dates: start: 20030101
  2. CYCLOSPORINE [Concomitant]

REACTIONS (2)
  - CONVULSION [None]
  - RESPIRATORY ARREST [None]
